FAERS Safety Report 8301810-0 (Version None)
Quarter: 2012Q2

REPORT INFORMATION
  Report Type: 
  Country: None (occurrence: None)
  Receive Date: 20120420
  Receipt Date: 20120412
  Transmission Date: 20120825
  Serious: Yes (Life-Threatening)
  Sender: FDA-Public Use
  Company Number: DE-CELGENEUS-062-50794-12031805

PATIENT
  Age: 68 Year
  Sex: Female

DRUGS (2)
  1. VIDAZA [Suspect]
     Route: 050
  2. CYTARABINE [Suspect]
     Dosage: 3600 MILLIGRAM
     Route: 065
     Dates: start: 20120222, end: 20120224

REACTIONS (1)
  - SEPTIC SHOCK [None]
